FAERS Safety Report 8168913-5 (Version None)
Quarter: 2012Q1

REPORT INFORMATION
  Report Type: 
  Country: None (occurrence: None)
  Receive Date: 20120222
  Receipt Date: 20120207
  Transmission Date: 20120608
  Serious: Yes (Hospitalization, Other)
  Sender: FDA-Public Use
  Company Number: DSJ-2011-25289

PATIENT
  Sex: Male

DRUGS (10)
  1. BROMOPRIDE (BROMOPRIDE) (BROMOPRIDE) [Concomitant]
  2. OMEPRAZOLE [Concomitant]
  3. FLURAZEPAM (FLURAZEPAM) (FLURAZEPAM) [Concomitant]
  4. TRIFOLIUM PRATENSE (TRIFOLIUM PRATENSE) (TRIFOLIUM PRATENSE) [Concomitant]
  5. ONDANSETRON [Concomitant]
  6. CAPTOPRIL (CAPTOPRIL) (CAPTOPRIL) [Concomitant]
  7. ALPRAZOLAM [Concomitant]
  8. BENICAR [Suspect]
     Indication: HYPERTENSION
     Dosage: 20 MG (20 MG, 1 IN 1 D), PER ORAL
     Route: 048
     Dates: end: 20111117
  9. CHEMOTHERAPY [Suspect]
     Indication: GASTROINTESTINAL CARCINOMA
     Dosage: PER ORAL
     Route: 048
  10. PAROXETINE (PAROXETINE) (PAROXETINE) [Concomitant]

REACTIONS (2)
  - GASTROINTESTINAL CARCINOMA [None]
  - DRUG INEFFECTIVE [None]
